FAERS Safety Report 7794344-3 (Version None)
Quarter: 2011Q4

REPORT INFORMATION
  Report Type: 
  Country: None (occurrence: None)
  Receive Date: 20111004
  Receipt Date: 20110926
  Transmission Date: 20120403
  Serious: Yes (Other)
  Sender: FDA-Public Use
  Company Number: AT-PFIZER INC-2011229371

PATIENT
  Age: 54 Year
  Sex: Female

DRUGS (11)
  1. CYMBALTA [Concomitant]
     Dosage: 60 MG, 1X/DAY
  2. LAEVOLAC [Concomitant]
     Indication: CONSTIPATION
     Dosage: UNK
  3. HYDROMORPHONE HCL [Suspect]
     Dosage: 4 MG, 2X/DAY, (1.3 TO 4MG AS NEEDED)
  4. ZOLPIDEM TARTRATE [Concomitant]
     Dosage: 1 DF, AS NEEDED
  5. LYRICA [Suspect]
     Indication: PAIN
     Dosage: 100 MG, 3X/DAY
  6. OMEPRAZOLE [Concomitant]
     Dosage: 40 MG, UNK
  7. SIMVASTATIN [Concomitant]
     Dosage: 40 MG, 1X/DAY
  8. FORMOTEROL FUMARATE [Concomitant]
     Dosage: 60 MG, 1X/DAY
  9. SERACTIL [Suspect]
     Dosage: 400 MG, 3X/DAY
  10. SPIRIVA [Concomitant]
     Dosage: 18 UG, 1X/DAY
  11. MIRTABENE [Concomitant]
     Dosage: 15 MG, 1X/DAY

REACTIONS (2)
  - DRUG INTERACTION [None]
  - DYSURIA [None]
